FAERS Safety Report 5278282-6 (Version None)
Quarter: 2007Q1

REPORT INFORMATION
  Report Type: 
  Country: None (occurrence: None)
  Receive Date: 20070328
  Receipt Date: 20070319
  Transmission Date: 20070707
  Serious: Yes (Other)
  Sender: FDA-Public Use
  Company Number: DEWYE083119MAR07

PATIENT

DRUGS (2)
  1. VENLAFAXINE HCL [Suspect]
     Indication: DEPRESSION
     Dosage: 150 MG PER DAY
     Dates: start: 20070201
  2. VENLAFAXINE HCL [Suspect]
     Indication: SOCIAL PHOBIA

REACTIONS (4)
  - ACCOMMODATION DISORDER [None]
  - GLAUCOMA [None]
  - HEADACHE [None]
  - VISUAL ACUITY REDUCED [None]
